FAERS Safety Report 7308173-8 (Version None)
Quarter: 2011Q1

REPORT INFORMATION
  Report Type: 
  Country: None (occurrence: None)
  Receive Date: 20110223
  Receipt Date: 20110217
  Transmission Date: 20110831
  Serious: Yes (Hospitalization)
  Sender: FDA-Public Use
  Company Number: CO-ROCHE-760318

PATIENT
  Sex: Female

DRUGS (1)
  1. PEGASYS [Suspect]
     Indication: HEPATITIS B
     Dosage: FREQUENCY: WEEKLY
     Route: 058
     Dates: start: 20100821

REACTIONS (2)
  - CHOLECYSTITIS [None]
  - INTESTINAL PERFORATION [None]
